FAERS Safety Report 5881727-1 (Version None)
Quarter: 2008Q3

REPORT INFORMATION
  Report Type: 
  Country: None (occurrence: None)
  Receive Date: 20080912
  Receipt Date: 20080708
  Transmission Date: 20090109
  Serious: No
  Sender: FDA-Public Use
  Company Number: US-ABBOTT-08P-163-0461992-00

PATIENT
  Sex: Male
  Weight: 51.588 kg

DRUGS (4)
  1. HUMIRA [Suspect]
     Indication: PSORIASIS
     Dosage: THREE INJECTIONS EVERY MONTH
     Route: 050
     Dates: start: 20080301, end: 20080510
  2. ACETYLSALICYLIC ACID SRT [Concomitant]
     Indication: PAIN
     Route: 048
  3. EUCERIN [Concomitant]
     Indication: ANALGESIA
     Route: 061
  4. EUCERIN [Concomitant]
     Indication: DRY SKIN PROPHYLAXIS

REACTIONS (3)
  - PAIN [None]
  - SKIN EXFOLIATION [None]
  - SKIN TIGHTNESS [None]
